FAERS Safety Report 16703323 (Version 2)
Quarter: 2022Q2

REPORT INFORMATION
  Report Type: Spontaneous
  Country: FR (occurrence: FR)
  Receive Date: 20190814
  Receipt Date: 20220516
  Transmission Date: 20220720
  Serious: Yes (Other)
  Sender: FDA-Public Use
  Company Number: None

PATIENT
  Age: 40 Year
  Sex: Male
  Weight: 71 kg

DRUGS (5)
  1. STAMARIL [Suspect]
     Active Substance: YELLOW FEVER VIRUS STRAIN 17D-204 LIVE ANTIGEN
     Indication: Immunisation
     Dosage: 1 DF
     Route: 030
     Dates: start: 20190518, end: 20190518
  2. IMOGAM RAGE [Suspect]
     Active Substance: HUMAN RABIES VIRUS IMMUNE GLOBULIN
     Indication: Animal bite
     Dosage: 1 DF, 1X
     Route: 030
     Dates: start: 20190518, end: 20190518
  3. IMOGAM RAGE [Suspect]
     Active Substance: HUMAN RABIES VIRUS IMMUNE GLOBULIN
     Dosage: UNK
     Dates: start: 20190525
  4. IXIARO [Suspect]
     Active Substance: JAPANESE ENCEPHALITIS VIRUS STRAIN NAKAYAMA-NIH ANTIGEN (FORMALDEHYDE INACTIVATED)
     Indication: Immunisation
     Dosage: 1 DF
     Route: 030
     Dates: start: 20190518, end: 20190518
  5. PRAVASTATIN [Concomitant]
     Active Substance: PRAVASTATIN
     Indication: Blood cholesterol

REACTIONS (1)
  - Chronic inflammatory demyelinating polyradiculoneuropathy [Not Recovered/Not Resolved]

NARRATIVE: CASE EVENT DATE: 20190520
